FAERS Safety Report 14116004 (Version 1)
Quarter: 2017Q4

REPORT INFORMATION
  Report Type: Spontaneous
  Country: RU (occurrence: RU)
  Receive Date: 20171023
  Receipt Date: 20171023
  Transmission Date: 20180321
  Serious: Yes (Death, Hospitalization)
  Sender: FDA-Public Use
  Company Number: RU-BAYER-2017-195851

PATIENT
  Age: 19 Year
  Sex: Female

DRUGS (1)
  1. YAZ [Suspect]
     Active Substance: DROSPIRENONE\ETHINYL ESTRADIOL
     Dosage: UNK
     Route: 048
     Dates: start: 2015

REACTIONS (23)
  - Pneumonia [Fatal]
  - Respiratory failure [Fatal]
  - Dyspnoea [Fatal]
  - Body temperature increased [Fatal]
  - Palpitations [Fatal]
  - Pain [Fatal]
  - Inflammation [Fatal]
  - Pulmonary infarction [Fatal]
  - Musculoskeletal pain [Fatal]
  - Gait disturbance [Fatal]
  - Back pain [Fatal]
  - Pulmonary thrombosis [Fatal]
  - Seizure [Fatal]
  - Sinus tachycardia [Fatal]
  - Menstrual disorder [None]
  - Decreased immune responsiveness [None]
  - Vaginal haemorrhage [None]
  - Pelvic venous thrombosis [Fatal]
  - Pulmonary embolism [Fatal]
  - Cardiac failure [Fatal]
  - Induration [Fatal]
  - Condition aggravated [None]
  - Drug dose omission [None]

NARRATIVE: CASE EVENT DATE: 2015
